FAERS Safety Report 18834155 (Version 1)
Quarter: 2021Q1

REPORT INFORMATION
  Report Type: Spontaneous
  Country: US (occurrence: US)
  Receive Date: 20210203
  Receipt Date: 20210203
  Transmission Date: 20210419
  Serious: No
  Sender: FDA-Public Use
  Company Number: None

PATIENT
  Age: 63 Year
  Sex: Female
  Weight: 49.5 kg

DRUGS (4)
  1. CALCIUM SUPPLEMENTS [Concomitant]
     Active Substance: CALCIUM
  2. ONE ? A ? DAY VITAMIN [Concomitant]
  3. YUVAFEM [Suspect]
     Active Substance: ESTRADIOL HEMIHYDRATE
     Indication: ATROPHIC VULVOVAGINITIS
     Dates: start: 20170101, end: 20200301
  4. VAGIME 10 MCG [Concomitant]

REACTIONS (5)
  - Product substitution issue [None]
  - Drug ineffective [None]
  - Fungal infection [None]
  - Pruritus [None]
  - Burning sensation [None]

NARRATIVE: CASE EVENT DATE: 20200301
